FAERS Safety Report 4291393-7 (Version None)
Quarter: 2004Q1

REPORT INFORMATION
  Report Type: 
  Country: None (occurrence: None)
  Receive Date: 20040211
  Receipt Date: 20020116
  Transmission Date: 20041129
  Serious: No
  Sender: FDA-Public Use
  Company Number: US-BRISTOL-MYERS SQUIBB COMPANY-11670213

PATIENT
  Age: 38 Year
  Sex: Male
  Weight: 82 kg

DRUGS (1)
  1. CEFZIL [Suspect]
     Indication: TONSILLITIS
     Dosage: 1 DOSAGE FORM = 1 TABLET
     Route: 048
     Dates: start: 20020103, end: 20020104

REACTIONS (3)
  - LOCALISED OEDEMA [None]
  - OEDEMA MOUTH [None]
  - TONSILLAR HYPERTROPHY [None]
